FAERS Safety Report 9145617 (Version 3)
Quarter: 2013Q2

REPORT INFORMATION
  Report Type: Spontaneous
  Country: US (occurrence: US)
  Receive Date: 20130307
  Receipt Date: 20130401
  Transmission Date: 20140414
  Serious: No
  Sender: FDA-Public Use
  Company Number: US-009507513-1303USA002860

PATIENT
  Age: 28 Year
  Sex: Female
  Weight: 96.15 kg

DRUGS (1)
  1. NEXPLANON [Suspect]
     Dosage: UNK
     Route: 059
     Dates: start: 20130305, end: 20130305

REACTIONS (4)
  - Device difficult to use [Unknown]
  - Device expulsion [Unknown]
  - Product quality issue [Unknown]
  - No adverse event [Unknown]
